FAERS Safety Report 21891262 (Version 1)
Quarter: 2023Q1

REPORT INFORMATION
  Report Type: Spontaneous
  Country: JP (occurrence: JP)
  Receive Date: 20230120
  Receipt Date: 20230120
  Transmission Date: 20230418
  Serious: Yes (Other)
  Sender: FDA-Public Use
  Company Number: JP-002147023-NVSC2023JP013388

PATIENT

DRUGS (2)
  1. LUTATHERA [Suspect]
     Active Substance: LUTETIUM OXODOTREOTIDE LU-177
     Indication: Neuroendocrine tumour
     Dosage: 7.4 GBQ (INJECTION)
     Route: 042
     Dates: start: 20221124
  2. ARGININE\LYSINE [Suspect]
     Active Substance: ARGININE\LYSINE
     Indication: Product used for unknown indication
     Dosage: UNK (INJECTION)
     Route: 042

REACTIONS (1)
  - Biliary tract infection [Unknown]

NARRATIVE: CASE EVENT DATE: 20230112
